FAERS Safety Report 9695835 (Version 1)
Quarter: 2013Q4

REPORT INFORMATION
  Report Type: Spontaneous
  Country: NG (occurrence: NG)
  Receive Date: 20131119
  Receipt Date: 20131119
  Transmission Date: 20140711
  Serious: Yes (Hospitalization)
  Sender: FDA-Public Use
  Company Number: NG-ASTRAZENECA-2013SE84058

PATIENT
  Age: 32 Year
  Sex: Female

DRUGS (1)
  1. MERONEM [Suspect]
     Route: 042

REACTIONS (1)
  - Body temperature increased [Unknown]
